FAERS Safety Report 19871569 (Version 1)
Quarter: 2021Q3

REPORT INFORMATION
  Report Type: Other
  Country: EG (occurrence: EG)
  Receive Date: 20210923
  Receipt Date: 20210923
  Transmission Date: 20211014
  Serious: Yes (Hospitalization, Other)
  Sender: FDA-Public Use
  Company Number: EG-ALLIED PHARMA-000087

PATIENT
  Sex: Male

DRUGS (3)
  1. ROSUVASTATIN. [Suspect]
     Active Substance: ROSUVASTATIN
     Indication: TYPE IIA HYPERLIPIDAEMIA
     Dosage: 40 MG DAILY, FOR 1 MONTH
  2. ROSUVASTATIN. [Suspect]
     Active Substance: ROSUVASTATIN
     Indication: TYPE IIA HYPERLIPIDAEMIA
     Dosage: 20 MG DAILY, AFTER 5 WEEKS
  3. ROSUVASTATIN. [Suspect]
     Active Substance: ROSUVASTATIN
     Indication: TYPE IIA HYPERLIPIDAEMIA
     Dosage: 5 MG DAILY, AFTER 3 MONTHS

REACTIONS (6)
  - Myalgia [Recovered/Resolved]
  - Insomnia [Recovered/Resolved]
  - Incorrect dose administered [Unknown]
  - Myocardial infarction [Recovered/Resolved]
  - Insulin resistance [Unknown]
  - Glycosylated haemoglobin increased [Unknown]
